FAERS Safety Report 24312080 (Version 1)
Quarter: 2024Q3

REPORT INFORMATION
  Report Type: Spontaneous
  Country: BR (occurrence: None)
  Receive Date: 20240912
  Receipt Date: 20240912
  Transmission Date: 20241016
  Serious: Yes (Other)
  Sender: ASTRAZENECA
  Company Number: 2024A204658

PATIENT
  Age: 86 Year
  Sex: Male

DRUGS (1)
  1. CALQUENCE [Suspect]
     Active Substance: ACALABRUTINIB
     Indication: Chronic lymphocytic leukaemia
     Route: 048

REACTIONS (4)
  - Haematotoxicity [Recovered/Resolved]
  - Abdominal wall haematoma [Recovered/Resolved]
  - Abdominal wall haemorrhage [Recovered/Resolved]
  - Neutropenia [Recovered/Resolved]
